FAERS Safety Report 5654673-6 (Version None)
Quarter: 2008Q1

REPORT INFORMATION
  Report Type: 
  Country: None (occurrence: None)
  Receive Date: 20080307
  Receipt Date: 20080120
  Transmission Date: 20080703
  Serious: Yes (Life-Threatening, Hospitalization, Other)
  Sender: FDA-Public Use
  Company Number: PHBS2007QA19020

PATIENT
  Age: 17 Year
  Sex: Male
  Weight: 45 kg

DRUGS (5)
  1. EXJADE [Suspect]
     Indication: IRON OVERLOAD
     Dosage: 1000 MG, UNK
     Route: 048
     Dates: start: 20070401
  2. EXJADE [Suspect]
     Dosage: 1250 MG/D
     Route: 048
     Dates: end: 20070901
  3. LISINOPRIL [Concomitant]
     Indication: CARDIOMYOPATHY
     Dosage: 20 MG/D
  4. FRUSEMIDE [Concomitant]
     Indication: CARDIOMYOPATHY
     Dosage: 40 MG/D
  5. HYDROCHLOROTHIAZIDE [Concomitant]
     Dosage: 12.5 MG/D

REACTIONS (13)
  - ASTHENIA [None]
  - BLOOD CREATININE INCREASED [None]
  - BLOOD POTASSIUM INCREASED [None]
  - BLOOD UREA INCREASED [None]
  - CONFUSIONAL STATE [None]
  - DEHYDRATION [None]
  - DIALYSIS [None]
  - DIARRHOEA [None]
  - HEPATOSPLENOMEGALY [None]
  - NAUSEA [None]
  - RENAL FAILURE ACUTE [None]
  - URINE OUTPUT DECREASED [None]
  - VOMITING [None]
